FAERS Safety Report 7811130-6 (Version None)
Quarter: 2011Q4

REPORT INFORMATION
  Report Type: 
  Country: None (occurrence: None)
  Receive Date: 20111013
  Receipt Date: 20111004
  Transmission Date: 20120403
  Serious: Yes (Other)
  Sender: FDA-Public Use
  Company Number: PHHY2011KR88862

PATIENT
  Sex: Male

DRUGS (1)
  1. AFINITOR [Suspect]

REACTIONS (3)
  - HAEMATOSPERMIA [None]
  - ULCER [None]
  - STOMATITIS [None]
